FAERS Safety Report 14270989 (Version 1)
Quarter: 2017Q4

REPORT INFORMATION
  Report Type: Spontaneous
  Country: US (occurrence: US)
  Receive Date: 20171211
  Receipt Date: 20171211
  Transmission Date: 20180321
  Serious: Yes (Hospitalization)
  Sender: FDA-Public Use
  Company Number: US-BAYER-2017-233845

PATIENT
  Age: 64 Year
  Sex: Male

DRUGS (3)
  1. IMITREX [Suspect]
     Active Substance: SUMATRIPTAN SUCCINATE
  2. BAYER ASPIRIN [Suspect]
     Active Substance: ASPIRIN
     Dosage: UNK
  3. CHANTIX [Suspect]
     Active Substance: VARENICLINE TARTRATE
     Indication: SMOKING CESSATION THERAPY
     Dosage: UNK
     Dates: start: 20170912

REACTIONS (5)
  - Major depression [Not Recovered/Not Resolved]
  - Mood altered [Recovering/Resolving]
  - Confusional state [Recovering/Resolving]
  - Paranoia [Not Recovered/Not Resolved]
  - Cognitive disorder [Recovering/Resolving]
